FAERS Safety Report 7271089-X (Version None)
Quarter: 2011Q1

REPORT INFORMATION
  Report Type: 
  Country: None (occurrence: None)
  Receive Date: 20110202
  Receipt Date: 20110124
  Transmission Date: 20110831
  Serious: Yes (Other)
  Sender: FDA-Public Use
  Company Number: US-ASTRAZENECA-2011SE03905

PATIENT
  Age: 66 Year
  Sex: Female

DRUGS (2)
  1. SEROQUEL [Suspect]
     Route: 048
  2. PRISTIQ [Suspect]

REACTIONS (3)
  - INJURY [None]
  - ROAD TRAFFIC ACCIDENT [None]
  - PAIN [None]
